FAERS Safety Report 5581203-X (Version None)
Quarter: 2007Q4

REPORT INFORMATION
  Report Type: 
  Country: None (occurrence: None)
  Receive Date: 20071227
  Receipt Date: 20071218
  Transmission Date: 20080405
  Serious: Yes (Life-Threatening, Hospitalization)
  Sender: FDA-Public Use
  Company Number: 2007SP025214

PATIENT
  Age: 53 Year
  Sex: Male
  Weight: 85 kg

DRUGS (5)
  1. TEMODAL [Suspect]
     Indication: GLIOBLASTOMA
     Dosage: 150 MG; QD; PO
     Route: 048
     Dates: start: 20071113, end: 20071216
  2. DEXAMETHASONE [Concomitant]
  3. DEPALEPT [Concomitant]
  4. ZANTAC [Concomitant]
  5. RESPRIM [Concomitant]

REACTIONS (1)
  - PANCREATITIS ACUTE [None]
